FAERS Safety Report 4299589-5 (Version None)
Quarter: 2004Q1

REPORT INFORMATION
  Report Type: 
  Country: None (occurrence: None)
  Receive Date: 20040217
  Receipt Date: 20040204
  Transmission Date: 20041129
  Serious: No
  Sender: FDA-Public Use
  Company Number: 2003GB02965

PATIENT
  Age: 59 Year
  Sex: Male

DRUGS (2)
  1. GEFITINIB [Suspect]
     Indication: NON-SMALL CELL LUNG CANCER
     Dosage: 250 MG QD PO
     Route: 048
     Dates: start: 20030806, end: 20031030
  2. SALBUTAMOL [Concomitant]

REACTIONS (3)
  - BLOOD BILIRUBIN INCREASED [None]
  - JAUNDICE [None]
  - LUNG INFECTION [None]
